FAERS Safety Report 9794845 (Version 1)
Quarter: 2014Q1

REPORT INFORMATION
  Report Type: Spontaneous
  Country: TR (occurrence: US)
  Receive Date: 20140102
  Receipt Date: 20140102
  Transmission Date: 20141002
  Serious: Yes (Death, Hospitalization, Other)
  Sender: FDA-Public Use
  Company Number: TR-MILLENNIUM PHARMACEUTICALS, INC.-2013TUS003406

PATIENT
  Sex: 0

DRUGS (1)
  1. COLCHICINE [Suspect]
     Dosage: 100 TABLETS OF 0.5 MG

REACTIONS (7)
  - Cardiac arrest [Fatal]
  - Suicide attempt [Unknown]
  - Disseminated intravascular coagulation [Unknown]
  - Multi-organ failure [Unknown]
  - Overdose [Unknown]
  - Rhabdomyolysis [Unknown]
  - Lactic acidosis [Unknown]
